FAERS Safety Report 23914610 (Version 2)
Quarter: 2024Q2

REPORT INFORMATION
  Report Type: Spontaneous
  Country: US (occurrence: US)
  Receive Date: 20240529
  Receipt Date: 20240606
  Transmission Date: 20240716
  Serious: Yes (Other)
  Sender: FDA-Public Use
  Company Number: US-SUN PHARMACEUTICAL INDUSTRIES LTD-2024R1-448241

PATIENT
  Age: 2 Week
  Sex: Female

DRUGS (2)
  1. SODIUM NITROPRUSSIDE [Suspect]
     Active Substance: SODIUM NITROPRUSSIDE
     Indication: Cardiac arrest
     Dosage: 10MCG/ KG /MIN
     Route: 065
  2. FENOLDOPAM [Suspect]
     Active Substance: FENOLDOPAM
     Indication: Cardiac arrest
     Dosage: UNK
     Route: 065

REACTIONS (3)
  - Toxicity to various agents [Unknown]
  - Hypertension [Unknown]
  - Lactic acidosis [Recovering/Resolving]
